FAERS Safety Report 24853111 (Version 1)
Quarter: 2025Q1

REPORT INFORMATION
  Report Type: Spontaneous
  Country: CZ (occurrence: CZ)
  Receive Date: 20250117
  Receipt Date: 20250117
  Transmission Date: 20250409
  Serious: Yes (Other)
  Sender: ALEXION PHARMACEUTICALS
  Company Number: CZ-ASTRAZENECA-202501EEA008391CZ

PATIENT
  Age: 78 Year

DRUGS (12)
  1. DURVALUMAB [Suspect]
     Active Substance: DURVALUMAB
     Indication: Small cell lung cancer extensive stage
     Dosage: FOR 4 CYCLES, Q3W
     Route: 065
  2. DURVALUMAB [Suspect]
     Active Substance: DURVALUMAB
     Dosage: FOR 4 CYCLES, Q3W
     Route: 065
  3. DURVALUMAB [Suspect]
     Active Substance: DURVALUMAB
     Dosage: FOR 4 CYCLES, Q3W
     Route: 065
  4. DURVALUMAB [Suspect]
     Active Substance: DURVALUMAB
     Dosage: FOR 4 CYCLES, Q3W
     Route: 065
  5. DURVALUMAB [Suspect]
     Active Substance: DURVALUMAB
     Dosage: UNK, Q4W
     Route: 065
  6. DURVALUMAB [Suspect]
     Active Substance: DURVALUMAB
     Dosage: UNK, Q4W
     Route: 065
  7. DURVALUMAB [Suspect]
     Active Substance: DURVALUMAB
     Dosage: UNK, Q4W
     Route: 065
  8. DURVALUMAB [Suspect]
     Active Substance: DURVALUMAB
     Dosage: UNK, Q4W
     Route: 065
  9. CARBOPLATIN [Concomitant]
     Active Substance: CARBOPLATIN
     Indication: Small cell lung cancer extensive stage
     Dosage: FOR 4 CYCLES, Q3W
     Route: 065
  10. CARBOPLATIN [Concomitant]
     Active Substance: CARBOPLATIN
     Dosage: FOR 4 CYCLES, Q3W
     Route: 065
  11. ETOPOSIDE [Concomitant]
     Active Substance: ETOPOSIDE
     Indication: Small cell lung cancer extensive stage
     Dosage: FOR 4 CYCLES, Q3W
     Route: 065
  12. ETOPOSIDE [Concomitant]
     Active Substance: ETOPOSIDE
     Dosage: FOR 4 CYCLES, Q3W
     Route: 065

REACTIONS (3)
  - Hyperthyroidism [Recovered/Resolved]
  - Hypothyroidism [Unknown]
  - Lower limb fracture [Unknown]
